FAERS Safety Report 10200778 (Version 2)
Quarter: 2014Q2

REPORT INFORMATION
  Report Type: Spontaneous
  Country: CA (occurrence: CA)
  Receive Date: 20140528
  Receipt Date: 20140602
  Transmission Date: 20141212
  Serious: Yes (Hospitalization)
  Sender: FDA-Public Use
  Company Number: CA-AMGEN-CANSP2014039137

PATIENT
  Age: 55 Year
  Sex: Female

DRUGS (4)
  1. ENBREL [Suspect]
     Indication: PSORIASIS
     Dosage: 50 MG, 2 TIMES/WK
     Route: 065
     Dates: start: 20120725, end: 201309
  2. SYNTHROID [Concomitant]
     Dosage: 50 MG, QD
  3. PARIET [Concomitant]
     Dosage: 20 MG, QD
  4. FERMAX [Concomitant]
     Dosage: UNK

REACTIONS (3)
  - Diverticulitis [Recovered/Resolved]
  - Menorrhagia [Unknown]
  - Anaemia [Recovering/Resolving]
